FAERS Safety Report 11565812 (Version 1)
Quarter: 2015Q3

REPORT INFORMATION
  Report Type: Report from Study
  Country: IN (occurrence: IN)
  Receive Date: 20150928
  Receipt Date: 20150928
  Transmission Date: 20151125
  Serious: Yes (Hospitalization)
  Sender: FDA-Public Use
  Company Number: IN-B.I. PHARMACEUTICALS,INC./RIDGEFIELD-2015-BI-52279BI

PATIENT
  Age: 69 Year
  Sex: Female
  Weight: 63 kg

DRUGS (22)
  1. TICAGRELOR [Suspect]
     Active Substance: TICAGRELOR
     Indication: ATRIAL FIBRILLATION
     Dosage: 180 MG
     Route: 048
     Dates: start: 20150901
  2. RABELOC [Concomitant]
     Indication: GASTRITIS
     Dosage: FORMULATION: INJ; DAILY DOSE: 20MG SOS
     Route: 042
     Dates: start: 20150831, end: 20150831
  3. LANOXIN [Concomitant]
     Active Substance: DIGOXIN
     Indication: CARDIAC FAILURE CONGESTIVE
     Dosage: 0.125 MG
     Route: 048
     Dates: start: 20150828, end: 20150921
  4. CREMAFIN [Concomitant]
     Dosage: FORMULATION LIQUID,DOSE PER APPLICATION AND DAILY DOSE 3TSF SOS
     Route: 048
     Dates: start: 20150902, end: 20150922
  5. THYRONORM [Concomitant]
     Active Substance: LEVOTHYROXINE
     Indication: HYPOTHYROIDISM
     Dosage: 50 MCG
     Route: 048
     Dates: start: 20150822, end: 20150827
  6. THYRONORM [Concomitant]
     Active Substance: LEVOTHYROXINE
     Dosage: 100 MCG
     Route: 048
     Dates: start: 20150828
  7. RABELOC [Concomitant]
     Dosage: 20 MG
     Route: 042
     Dates: start: 20150921, end: 20150922
  8. DABIGATRAN [Suspect]
     Active Substance: DABIGATRAN
     Indication: ATRIAL FIBRILLATION
     Dosage: 220 MG
     Route: 048
     Dates: start: 20150901
  9. PANTOCID DSR [Concomitant]
     Dosage: 40 MG
     Route: 048
     Dates: start: 20150907
  10. CYTOGARD [Concomitant]
     Indication: ANGINA PECTORIS
     Dosage: 60 MG
     Route: 048
     Dates: start: 20150828, end: 20150907
  11. EPTUS [Concomitant]
     Dosage: 100 MG
     Route: 048
     Dates: start: 20150902
  12. BECOSULES [Concomitant]
     Indication: VITAMIN SUPPLEMENTATION
     Dosage: DOSE PER APP/DAILY DOSE: 3 TSP.
     Route: 048
     Dates: start: 20150907
  13. PANTOCID DSR [Concomitant]
     Indication: GASTRITIS
     Dosage: 80 MG
     Route: 048
     Dates: start: 20150831, end: 20150907
  14. RANOZEX [Concomitant]
     Indication: ANGINA PECTORIS
     Dosage: 100 MG
     Route: 048
     Dates: start: 20150828
  15. AZTOR [Concomitant]
     Indication: PROPHYLAXIS
     Dosage: 40 MG
     Route: 048
     Dates: start: 20150828, end: 20150921
  16. IMDUR [Concomitant]
     Active Substance: ISOSORBIDE MONONITRATE
     Indication: ANGINA PECTORIS
     Dosage: 50 MG
     Route: 048
     Dates: start: 20150921
  17. RABELOC [Concomitant]
     Dosage: 40 MG
     Route: 042
     Dates: start: 20150830, end: 20150830
  18. CALCIUM [Concomitant]
     Active Substance: CALCIUM
     Indication: ANGINA PECTORIS
     Dosage: 10 MG
     Route: 048
     Dates: start: 20150901
  19. AZTOR [Concomitant]
     Dosage: 40 MG
     Route: 048
     Dates: start: 20150921
  20. CREMAFIN [Concomitant]
     Indication: CONSTIPATION
     Dosage: FORMULATION LIQUID,DOSE PER APPLICATION AND DAILY DOSE 3TSF
     Route: 048
     Dates: start: 20150902, end: 20150922
  21. TOR [Concomitant]
     Indication: DIURETIC THERAPY
     Dosage: 20 MG
     Route: 048
     Dates: start: 20150831, end: 20150921
  22. EPTUS [Concomitant]
     Indication: DIURETIC THERAPY
     Dosage: 25 MG
     Route: 048
     Dates: start: 20150901, end: 20150901

REACTIONS (1)
  - Hypokalaemia [Recovered/Resolved]

NARRATIVE: CASE EVENT DATE: 20150921
